FAERS Safety Report 4860468-3 (Version None)
Quarter: 2005Q4

REPORT INFORMATION
  Report Type: 
  Country: None (occurrence: None)
  Receive Date: 20051215
  Receipt Date: 20051202
  Transmission Date: 20060501
  Serious: Yes (Other)
  Sender: FDA-Public Use
  Company Number: GXBR2005US01781

PATIENT
  Age: 71 Year
  Sex: Male

DRUGS (4)
  1. RIFAMPIN [Suspect]
     Indication: MYCOBACTERIUM AVIUM COMPLEX INFECTION
     Dates: start: 20040101
  2. ETHAMBUTOL (EHTAMBUTOL) [Suspect]
     Indication: MYCOBACTERIUM AVIUM COMPLEX INFECTION
     Dosage: 400 MG,
     Dates: start: 20040101, end: 20051001
  3. LISINOPRIL W/HYDROCHLOROTHIAZIDE (HYDROCHLOROTHIAZIDE, LISINOPRIL) [Concomitant]
  4. CLARITHROMYCIN [Concomitant]

REACTIONS (15)
  - BLINDNESS [None]
  - CATARACT NUCLEAR [None]
  - CEREBRAL ATROPHY [None]
  - CEREBRAL ISCHAEMIA [None]
  - CHROMATOPSIA [None]
  - COLOUR BLINDNESS [None]
  - LACUNAR INFARCTION [None]
  - MACULOPATHY [None]
  - OPTIC NEUROPATHY [None]
  - RETINAL PIGMENT EPITHELIOPATHY [None]
  - SCOTOMA [None]
  - THERAPY NON-RESPONDER [None]
  - VISION BLURRED [None]
  - VISUAL ACUITY REDUCED [None]
  - VISUAL FIELD DEFECT [None]
